FAERS Safety Report 7088537-0 (Version None)
Quarter: 2010Q4

REPORT INFORMATION
  Report Type: 
  Country: None (occurrence: None)
  Receive Date: 20101108
  Receipt Date: 20101029
  Transmission Date: 20110411
  Serious: Yes (Other)
  Sender: FDA-Public Use
  Company Number: US-PFIZER INC-2010138398

PATIENT
  Age: 48 Year
  Sex: Female
  Weight: 65.76 kg

DRUGS (5)
  1. NEURONTIN [Suspect]
     Indication: MULTIPLE SCLEROSIS
     Dosage: 600 MG, 3X/DAY
     Route: 048
     Dates: start: 20090101, end: 20100524
  2. NEURONTIN [Suspect]
     Indication: BIPOLAR DISORDER
  3. BACLOFEN [Concomitant]
     Dosage: UNK
  4. KLONOPIN [Concomitant]
     Dosage: UNK
  5. TRAMADOL [Concomitant]
     Dosage: UNK

REACTIONS (3)
  - ERYTHEMA [None]
  - OVERDOSE [None]
  - PARAESTHESIA [None]
